FAERS Safety Report 10038144 (Version 1)
Quarter: 2014Q1

REPORT INFORMATION
  Report Type: Spontaneous
  Country: US (occurrence: None)
  Receive Date: 20140306
  Receipt Date: 20140306
  Transmission Date: 20141002
  Serious: Yes (Hospitalization)
  Sender: FDA-Public Use
  Company Number: 163-21880-13082929

PATIENT
  Age: 59 Year
  Sex: Female
  Weight: 91.6 kg

DRUGS (11)
  1. REVLIMID (LENALIDOMIDE) (5 MILLIGRAM, CAPSULES) [Suspect]
     Indication: PLASMA CELL MYELOMA
     Route: 048
     Dates: start: 201012
  2. ESTRADIOL(ESTRADIOL) [Concomitant]
  3. LYRICA (PREGABALIN) [Concomitant]
  4. DAPSONE(DAPSONE) [Concomitant]
  5. COUMADIN(WARFARIN SODIUM) [Concomitant]
  6. CALCIUM(CALCIUM) [Concomitant]
  7. ACYCLOVIR(ACICLOVIR) [Concomitant]
  8. ZOFRAN(ONDANSETRON HYDROCHLORIDE) [Concomitant]
  9. SYNTHROID(LEVOTHYROXINE SODIUM) [Concomitant]
  10. VITAMIN D (ERGOCALCIFEROL) [Concomitant]
  11. OXYCODONE HCL (OXYCODONE HYDROCHLORIDE) [Concomitant]

REACTIONS (1)
  - Deep vein thrombosis [None]
